FAERS Safety Report 22110931 (Version 3)
Quarter: 2023Q2

REPORT INFORMATION
  Report Type: Spontaneous
  Country: US (occurrence: US)
  Receive Date: 20230317
  Receipt Date: 20230512
  Transmission Date: 20230722
  Serious: Yes (Other)
  Sender: FDA-Public Use
  Company Number: US-PFIZER INC-PV202300017869

PATIENT
  Age: 73 Year
  Sex: Female
  Weight: 87.075 kg

DRUGS (2)
  1. IBRANCE [Suspect]
     Active Substance: PALBOCICLIB
     Dosage: 125 MG
  2. IBRANCE [Suspect]
     Active Substance: PALBOCICLIB
     Dosage: 100 MG

REACTIONS (4)
  - Blindness [Unknown]
  - Confusional state [Unknown]
  - Liver function test increased [Recovered/Resolved]
  - Inappropriate schedule of product administration [Unknown]
